FAERS Safety Report 10399025 (Version 1)
Quarter: 2014Q3

REPORT INFORMATION
  Report Type: Spontaneous
  Country: DE (occurrence: DE)
  Receive Date: 20140821
  Receipt Date: 20140821
  Transmission Date: 20150326
  Serious: Yes (Other)
  Sender: FDA-Public Use
  Company Number: PHHY2014DE102316

PATIENT
  Age: 36 Year
  Sex: Male

DRUGS (11)
  1. METHOTREXATE [Suspect]
     Active Substance: METHOTREXATE
     Indication: CENTRAL NERVOUS SYSTEM LYMPHOMA
     Dosage: 3500 MG/M2, UNK
  2. BICNU [Suspect]
     Active Substance: CARMUSTINE
     Indication: CENTRAL NERVOUS SYSTEM LYMPHOMA
     Dosage: 400 MG/M2, UNK
  3. RITUXIMAB [Suspect]
     Active Substance: RITUXIMAB
     Indication: CENTRAL NERVOUS SYSTEM LYMPHOMA
     Dosage: 750 MG/M2, UNK
  4. THIOTEPA. [Suspect]
     Active Substance: THIOTEPA
     Indication: CENTRAL NERVOUS SYSTEM LYMPHOMA
     Dosage: 5 MG/M2, UNK
  5. TENOFOVIR [Concomitant]
     Active Substance: TENOFOVIR
     Indication: HIV INFECTION
  6. RALTEGRAVIR [Concomitant]
     Active Substance: RALTEGRAVIR
     Indication: HIV INFECTION
  7. RITONAVIR [Concomitant]
     Active Substance: RITONAVIR
     Indication: HIV INFECTION
  8. EMTRICITABINE [Concomitant]
     Active Substance: EMTRICITABINE
     Indication: HIV INFECTION
  9. DARUNAVIR [Concomitant]
     Active Substance: DARUNAVIR
     Indication: HIV INFECTION
  10. COTRIMOXAZOLE [Concomitant]
     Active Substance: SULFAMETHOXAZOLE\TRIMETHOPRIM
     Indication: PROPHYLAXIS
     Dosage: 960 MG, THREE TIMES A WEEK
  11. CYTARABINE. [Suspect]
     Active Substance: CYTARABINE
     Indication: CENTRAL NERVOUS SYSTEM LYMPHOMA
     Dosage: 2000 MG/M2, UNK

REACTIONS (15)
  - Haematotoxicity [Recovered/Resolved]
  - Infection [Recovered/Resolved]
  - Metastases to pharynx [Unknown]
  - Pancytopenia [Unknown]
  - Bone marrow failure [Unknown]
  - Transplant failure [Unknown]
  - Delayed engraftment [Unknown]
  - Oral herpes [Unknown]
  - Kaposi^s sarcoma [Unknown]
  - Metastases to lung [Unknown]
  - Pyrexia [Recovered/Resolved]
  - Mucosal inflammation [Unknown]
  - Drug effect incomplete [Unknown]
  - Granulocytopenia [Unknown]
  - Malignant neoplasm progression [Unknown]
